FAERS Safety Report 8877413 (Version 3)
Quarter: 2013Q1

REPORT INFORMATION
  Report Type: Spontaneous
  Country: US (occurrence: US)
  Receive Date: 20121024
  Receipt Date: 20130201
  Transmission Date: 20140127
  Serious: No
  Sender: FDA-Public Use
  Company Number: US-PFIZER INC-2012265460

PATIENT
  Age: 63 Year
  Sex: Female
  Weight: 66.67 kg

DRUGS (6)
  1. LIPITOR [Suspect]
     Indication: CORONARY ARTERY DISEASE
     Dosage: 10 MG, DAILY
     Dates: end: 201110
  2. LIPITOR [Suspect]
     Dosage: 20 MG, DAILY
     Dates: start: 201110, end: 201206
  3. LIPITOR [Suspect]
     Dosage: 30 MG, DAILY
     Dates: start: 201206, end: 2012
  4. SEROQUEL [Suspect]
     Indication: BIPOLAR DISORDER
     Dosage: 575 MG, DAILY
  5. COENZYME Q10 [Suspect]
     Indication: CARDIAC DISORDER
     Dosage: 100 MG, DAILY
  6. FISH OIL\OMEGA-3 FATTY ACIDS [Suspect]
     Indication: CARDIAC DISORDER
     Dosage: [FISH OIL 1400MG]/[OMEGA 3, 1000MG], DAILY

REACTIONS (2)
  - Tremor [Unknown]
  - Muscle spasms [Recovered/Resolved]
